FAERS Safety Report 9175392 (Version 1)
Quarter: 2013Q1

REPORT INFORMATION
  Report Type: Spontaneous
  Country: FR (occurrence: FR)
  Receive Date: 20130320
  Receipt Date: 20130320
  Transmission Date: 20140127
  Serious: Yes (Hospitalization)
  Sender: FDA-Public Use
  Company Number: FR-ROCHE-1203811

PATIENT
  Age: 66 Year
  Sex: Male

DRUGS (4)
  1. PEGASYS [Suspect]
     Indication: LIVER TRANSPLANT
     Route: 065
     Dates: start: 20121123, end: 20130130
  2. COPEGUS [Suspect]
     Indication: CHRONIC HEPATITIS C
     Route: 065
     Dates: start: 20121123, end: 20130130
  3. CELLCEPT [Suspect]
     Indication: CHRONIC HEPATITIS C
     Route: 065
     Dates: start: 20111123
  4. INCIVO [Suspect]
     Indication: CHRONIC HEPATITIS C
     Route: 065
     Dates: start: 20121123, end: 20130130

REACTIONS (1)
  - Renal failure acute [Recovered/Resolved]
